FAERS Safety Report 14582590 (Version 1)
Quarter: 2018Q1

REPORT INFORMATION
  Report Type: Spontaneous
  Country: JP (occurrence: JP)
  Receive Date: 20180228
  Receipt Date: 20180228
  Transmission Date: 20180509
  Serious: Yes (Other)
  Sender: FDA-Public Use
  Company Number: JP-PFIZER INC-2018083221

PATIENT
  Age: 72 Year
  Sex: Male

DRUGS (8)
  1. CELECOX [Suspect]
     Active Substance: CELECOXIB
     Indication: ARTHRALGIA
     Dosage: 100 MG, 2X/DAY
     Route: 048
     Dates: start: 20170327, end: 20170410
  2. CARDENALIN [Concomitant]
     Active Substance: DOXAZOSIN MESYLATE
     Dosage: UNK UNK, UNKNOWN FREQ.
     Route: 065
     Dates: start: 20140207
  3. SELBEX [Concomitant]
     Active Substance: TEPRENONE
     Dosage: 1.5 G, 1X/DAY
     Route: 065
     Dates: start: 19940928
  4. URSO [Concomitant]
     Active Substance: URSODIOL
     Dosage: 300 MG, 1X/DAY
     Route: 065
     Dates: start: 19940906
  5. ZYLORIC [Concomitant]
     Active Substance: ALLOPURINOL
     Dosage: 200 MG, 1X/DAY
     Route: 065
     Dates: start: 20031015
  6. REZALTAS [Concomitant]
     Active Substance: AZELNIDIPINE\OLMESARTAN MEDOXOMIL
     Dosage: UNK UNK, UNKNOWN FREQ.
     Route: 065
     Dates: start: 20140207
  7. CLARITIN [Concomitant]
     Active Substance: LORATADINE
     Dosage: UNK UNK, UNKNOWN FREQ.
     Route: 065
     Dates: start: 20170224
  8. LOXONIN [Concomitant]
     Active Substance: LOXOPROFEN SODIUM
     Dosage: UNK UNK, UNKNOWN FREQ.
     Route: 065
     Dates: start: 20100625

REACTIONS (1)
  - Toxic skin eruption [Recovered/Resolved]

NARRATIVE: CASE EVENT DATE: 20170407
